FAERS Safety Report 18663902 (Version 1)
Quarter: 2020Q4

REPORT INFORMATION
  Report Type: Spontaneous
  Country: GB (occurrence: GB)
  Receive Date: 20201224
  Receipt Date: 20201224
  Transmission Date: 20210114
  Serious: No
  Sender: FDA-Public Use
  Company Number: GB-MARKSANS PHARMA LIMITED-2103480

PATIENT
  Sex: Female

DRUGS (1)
  1. METFORMIN MOLECULE FROM UK MARKET [Suspect]
     Active Substance: METFORMIN HYDROCHLORIDE
     Route: 048

REACTIONS (2)
  - Diarrhoea [None]
  - Abdominal pain upper [None]
